FAERS Safety Report 5843057-3 (Version None)
Quarter: 2008Q3

REPORT INFORMATION
  Report Type: 
  Country: None (occurrence: None)
  Receive Date: 20080811
  Receipt Date: 20080730
  Transmission Date: 20090109
  Serious: Yes (Hospitalization)
  Sender: FDA-Public Use
  Company Number: 2008-02392

PATIENT
  Age: 59 Year
  Sex: Male
  Weight: 89.9 kg

DRUGS (21)
  1. VELCADE [Suspect]
     Indication: MANTLE CELL LYMPHOMA
     Dosage: 1.3 MG/M2, INTRAVENOUS
     Route: 042
     Dates: start: 20080616, end: 20080619
  2. CYCLOPHOSPHAMIDE [Suspect]
     Indication: MANTLE CELL LYMPHOMA
     Dosage: 3780 MG, INTRAVENOUS
     Route: 042
     Dates: start: 20080616, end: 20080619
  3. RITUXAN [Suspect]
     Indication: MANTLE CELL LYMPHOMA
     Dosage: 790 MG, INTRAVENOUS
     Route: 042
     Dates: start: 20080616
  4. DOXORUBICIN HCL [Suspect]
     Indication: MANTLE CELL LYMPHOMA
     Dosage: 106 MG, INTRAVENOUS
     Route: 042
     Dates: start: 20080616, end: 20080617
  5. DEXAMETHASONE TAB [Suspect]
     Indication: MANTLE CELL LYMPHOMA
     Dosage: 160 MG, ORAL
     Route: 048
     Dates: start: 20080616, end: 20080619
  6. VINCRISTINE [Suspect]
     Indication: MANTLE CELL LYMPHOMA
     Dosage: 1 MG, INTRAVENOUS
     Route: 042
     Dates: start: 20080619
  7. ACYCLOVIR [Concomitant]
  8. FLUCONAZOLE [Concomitant]
  9. NOVOLOG [Concomitant]
  10. METFORMIN HCL [Concomitant]
  11. MULTIVITAMINS (ERGOCALCIFEROL, PANTHENOL, NICOTINAMIDE, RIBOFLAVIN, TH [Concomitant]
  12. NIACIN [Concomitant]
  13. PROTONIX [Concomitant]
  14. CILIUM [Concomitant]
  15. BACTRIM DS [Concomitant]
  16. DIOVAN [Concomitant]
  17. PERCOCET [Concomitant]
  18. ATIVAN [Concomitant]
  19. MIRALAX [Concomitant]
  20. COMPAZINE [Concomitant]
  21. NEULASTA [Concomitant]

REACTIONS (8)
  - BLOOD GLUCOSE INCREASED [None]
  - BLOOD SODIUM DECREASED [None]
  - FEBRILE NEUTROPENIA [None]
  - HAEMATOCRIT DECREASED [None]
  - HAEMOGLOBIN DECREASED [None]
  - INFECTION [None]
  - PLATELET COUNT DECREASED [None]
  - PNEUMONIA [None]
